FAERS Safety Report 6133505-6 (Version None)
Quarter: 2009Q1

REPORT INFORMATION
  Report Type: 
  Country: None (occurrence: None)
  Receive Date: 20090326
  Receipt Date: 20090317
  Transmission Date: 20090719
  Serious: Yes (Other)
  Sender: FDA-Public Use
  Company Number: US-ABBOTT-09P-163-0563106-00

PATIENT
  Sex: Female
  Weight: 82.174 kg

DRUGS (4)
  1. HUMIRA [Suspect]
     Indication: PSORIATIC ARTHROPATHY
     Route: 058
     Dates: start: 20070101
  2. PRILOSEC [Concomitant]
     Indication: PROPHYLAXIS
     Dates: start: 20081201
  3. PRILOSEC [Concomitant]
     Indication: ABDOMINAL DISCOMFORT
  4. LEVOTHYROXINE SODIUM [Concomitant]
     Indication: DRUG USE FOR UNKNOWN INDICATION

REACTIONS (3)
  - ARTHRALGIA [None]
  - POLLAKIURIA [None]
  - URINARY INCONTINENCE [None]
